FAERS Safety Report 4710694-9 (Version None)
Quarter: 2005Q3

REPORT INFORMATION
  Report Type: 
  Country: None (occurrence: None)
  Receive Date: 20050711
  Receipt Date: 20050421
  Transmission Date: 20060218
  Serious: Yes (Hospitalization)
  Sender: FDA-Public Use
  Company Number: US-MERCK-0504USA04026

PATIENT
  Age: 67 Year
  Sex: Male

DRUGS (8)
  1. COZAAR [Suspect]
     Route: 048
     Dates: start: 20040301
  2. WARFARIN [Concomitant]
     Route: 065
  3. SOTALOL HYDROCHLORIDE [Concomitant]
     Route: 065
  4. LEVOXYL [Concomitant]
     Route: 065
  5. ZETIA [Concomitant]
     Route: 048
  6. DIGITEK [Concomitant]
     Route: 065
  7. COENZYME Q10 [Concomitant]
     Route: 065
  8. ATACAND [Concomitant]
     Route: 065

REACTIONS (4)
  - DYSPEPSIA [None]
  - ORAL DISCOMFORT [None]
  - SICK SINUS SYNDROME [None]
  - VOMITING [None]
